FAERS Safety Report 7490909-7 (Version None)
Quarter: 2011Q2

REPORT INFORMATION
  Report Type: 
  Country: None (occurrence: None)
  Receive Date: 20110517
  Receipt Date: 20110517
  Transmission Date: 20111010
  Serious: No
  Sender: FDA-Public Use
  Company Number: None

PATIENT

DRUGS (1)
  1. ESTROGEL [Suspect]
     Indication: MENOPAUSAL SYMPTOMS
     Dosage: 2 PUMPS EVERY DAY TRANSDERMAL
     Route: 062

REACTIONS (3)
  - PRODUCT QUALITY ISSUE [None]
  - BLOOD OESTROGEN DECREASED [None]
  - PRODUCT MEASURED POTENCY ISSUE [None]
